FAERS Safety Report 6934155-1 (Version None)
Quarter: 2010Q3

REPORT INFORMATION
  Report Type: 
  Country: None (occurrence: None)
  Receive Date: 20100820
  Receipt Date: 20100813
  Transmission Date: 20110219
  Serious: Yes (Other)
  Sender: FDA-Public Use
  Company Number: US-SANOFI-AVENTIS-2010SA048490

PATIENT
  Age: 53 Year
  Sex: Male

DRUGS (5)
  1. LANTUS [Suspect]
     Indication: TYPE 2 DIABETES MELLITUS
     Dosage: DOSE:20 UNIT(S)
     Route: 058
     Dates: start: 20060101
  2. OPTICLICK [Suspect]
     Indication: TYPE 2 DIABETES MELLITUS
     Dates: start: 20060101
  3. ANTIHYPERTENSIVES [Concomitant]
  4. POTASSIUM [Concomitant]
  5. DIURETICS [Concomitant]

REACTIONS (3)
  - BLINDNESS [None]
  - MACULAR DEGENERATION [None]
  - RETINOPATHY [None]
